FAERS Safety Report 23777791 (Version 1)
Quarter: 2024Q2

REPORT INFORMATION
  Report Type: Spontaneous
  Country: DE (occurrence: DE)
  Receive Date: 20240424
  Receipt Date: 20240424
  Transmission Date: 20240716
  Serious: Yes (Life-Threatening, Hospitalization, Other)
  Sender: FDA-Public Use
  Company Number: None

PATIENT
  Age: 90 Year
  Sex: Male
  Weight: 80 kg

DRUGS (13)
  1. RIVASTIGMINE [Suspect]
     Active Substance: RIVASTIGMINE
     Indication: Dementia
     Dosage: 3 MG, QD (HOME MEDICATION, DURATION OF INTAKE UNKNOWN)
     Route: 065
     Dates: end: 2023
  2. ASPIRIN [Concomitant]
     Active Substance: ASPIRIN
     Indication: Product used for unknown indication
     Dosage: 100 MG, QD, (HOME MEDICATION BEFORE INPATIENT ADMISSION)
     Route: 065
  3. BRIMONID [Concomitant]
     Indication: Product used for unknown indication
     Dosage: 1 DOSAGE FORM, 0.5 DAY (2 MG / ML AUGENTROPFEN, 1 - 0 - 1,(0.5 DAYS,HOME MEDICATION BEFORE INPATIENT
     Route: 065
  4. CANDESARTAN [Concomitant]
     Active Substance: CANDESARTAN
     Dosage: 1 - 0 - 0.5, (HOME MEDICATION BEFORE INPATIENT ADMISSION)
     Route: 065
  5. CANDESARTAN [Concomitant]
     Active Substance: CANDESARTAN
     Indication: Product used for unknown indication
     Dosage: UNK (1 - 0 - 0.5 (HOME MEDICATION BEFORE INPATIENT ADMISSION))
     Route: 065
  6. FOLIC ACID [Concomitant]
     Active Substance: FOLIC ACID
     Indication: Product used for unknown indication
     Dosage: 5 MG, QD, (HOME MEDICATION BEFORE INPATIENT ADMISSION), ( STRENGTH 1, 4, 5, 20, MG)
     Route: 065
  7. INSULIN HUMAN [Concomitant]
     Active Substance: INSULIN HUMAN
     Indication: Product used for unknown indication
     Dosage: UNK, (26 - 0 - 24 - 0, HOME MEDICATION BEFORE INPATIENT ADMISSION)
     Route: 065
  8. MIRTAZAPINE [Concomitant]
     Active Substance: MIRTAZAPINE
     Indication: Product used for unknown indication
     Dosage: 15 MG, QD, (0-0-1-0, HOME MEDICATION BEFORE INPATIENT ADMISSION)
     Route: 065
  9. METAMIZOLE [Concomitant]
     Active Substance: METAMIZOLE
     Indication: Product used for unknown indication
     Dosage: 500 MG, PRN, (IF NECESSARY, HOME MEDICATION BEFORE ADMISSION TO THE HOSPITAL)
     Route: 065
  10. SIMVASTATIN [Concomitant]
     Active Substance: SIMVASTATIN
     Indication: Product used for unknown indication
     Dosage: 20 MG, QD, (0-0-1-0 HOME MEDICATION BEFORE INPATIENT ADMISSION)
     Route: 065
  11. NALOXONE HYDROCHLORIDE\TILIDINE HYDROCHLORIDE [Concomitant]
     Active Substance: NALOXONE HYDROCHLORIDE\TILIDINE HYDROCHLORIDE
     Indication: Product used for unknown indication
     Dosage: UNK, PRN (50/4 MG (IF NECESSARY, HOME MEDICATION BEFORE ADMISSION TO THE HOSPITAL) PRN
     Route: 065
  12. TORSEMIDE [Concomitant]
     Active Substance: TORSEMIDE
     Indication: Product used for unknown indication
     Dosage: 10 MG, QD, (1-0-0-0, HOME MEDICATION BEFORE INPATIENT ADMISSION
     Route: 065
  13. ZOLPIDEM [Concomitant]
     Active Substance: ZOLPIDEM TARTRATE
     Indication: Insomnia
     Dosage: 10 MG
     Route: 065

REACTIONS (5)
  - Bradycardia [Not Recovered/Not Resolved]
  - Brain contusion [Not Recovered/Not Resolved]
  - Femur fracture [Not Recovered/Not Resolved]
  - Atrioventricular block complete [Not Recovered/Not Resolved]
  - Fall [Not Recovered/Not Resolved]

NARRATIVE: CASE EVENT DATE: 20230718
